FAERS Safety Report 8032728-9 (Version None)
Quarter: 2011Q4

REPORT INFORMATION
  Report Type: 
  Country: None (occurrence: None)
  Receive Date: 20111202
  Receipt Date: 20101013
  Transmission Date: 20120403
  Serious: Yes (Disabling)
  Sender: FDA-Public Use
  Company Number: WAES 1010USA01930

PATIENT
  Sex: Female

DRUGS (2)
  1. ACTONEL [Suspect]
     Dates: start: 20021001, end: 20060801
  2. FOSAMAX [Suspect]
     Dosage: PO
     Route: 048
     Dates: start: 20020401, end: 20021001

REACTIONS (1)
  - OSTEONECROSIS OF JAW [None]
